FAERS Safety Report 20191927 (Version 1)
Quarter: 2021Q4

REPORT INFORMATION
  Report Type: Spontaneous
  Country: IT (occurrence: IT)
  Receive Date: 20211216
  Receipt Date: 20211216
  Transmission Date: 20220303
  Serious: Yes (Life-Threatening, Other)
  Sender: FDA-Public Use
  Company Number: None

PATIENT
  Age: 36 Year
  Sex: Female

DRUGS (14)
  1. CAPECITABINE [Suspect]
     Active Substance: CAPECITABINE
     Indication: Hormone receptor positive breast cancer
     Dosage: DAY1 - DAY 14
     Route: 065
     Dates: start: 201810
  2. DOCETAXEL [Suspect]
     Active Substance: DOCETAXEL
     Indication: Hormone receptor positive breast cancer
     Route: 065
  3. DOXORUBICIN [Suspect]
     Active Substance: DOXORUBICIN
     Indication: Hormone receptor positive breast cancer
     Dosage: 4 CYCLES
     Route: 065
  4. GEMCITABINE [Suspect]
     Active Substance: GEMCITABINE
     Indication: Hormone receptor positive breast cancer
     Dosage: DAY 1, DAY 8
     Route: 065
  5. PACLITAXEL [Suspect]
     Active Substance: PACLITAXEL
     Indication: Hormone receptor positive breast cancer
     Route: 065
  6. TRASTUZUMAB [Suspect]
     Active Substance: TRASTUZUMAB
     Indication: HER2 positive breast cancer
     Dosage: MAINTENANCE DOSE 4 CYCLES
     Route: 065
  7. LAPATINIB DITOSYLATE [Suspect]
     Active Substance: LAPATINIB DITOSYLATE
     Indication: Hormone receptor positive breast cancer
     Route: 065
  8. NAVELBINE [Suspect]
     Active Substance: VINORELBINE TARTRATE
     Indication: Hormone receptor positive breast cancer
     Dosage: DAY 1-DAY8
     Route: 065
  9. PERTUZUMAB [Suspect]
     Active Substance: PERTUZUMAB
     Indication: HER2 positive breast cancer
     Dosage: INFUSION, SOLUTION
     Route: 065
  10. DENOSUMAB [Suspect]
     Active Substance: DENOSUMAB
     Indication: Hormone receptor positive breast cancer
     Route: 065
  11. CYCLOPHOSPHAMIDE [Suspect]
     Active Substance: CYCLOPHOSPHAMIDE
     Indication: Hormone receptor positive breast cancer
     Route: 065
  12. ADO-TRASTUZUMAB EMTANSINE [Suspect]
     Active Substance: ADO-TRASTUZUMAB EMTANSINE
     Indication: Hormone receptor positive breast cancer
     Route: 065
     Dates: start: 201608
  13. TAMOXIFEN [Concomitant]
     Active Substance: TAMOXIFEN
  14. GONADORELIN DIACETATE TETRAHYDRATE [Concomitant]
     Active Substance: GONADORELIN DIACETATE TETRAHYDRATE

REACTIONS (10)
  - Anaemia [Recovered/Resolved]
  - Pain in extremity [Recovered/Resolved]
  - Neutropenia [Recovered/Resolved]
  - Thrombocytopenia [Recovered/Resolved]
  - Hypertransaminasaemia [Recovered/Resolved]
  - Mucosal inflammation [Recovered/Resolved]
  - Hepatotoxicity [Unknown]
  - Metastases to lung [Unknown]
  - Metastases to lymph nodes [Unknown]
  - Metastases to bone [Unknown]

NARRATIVE: CASE EVENT DATE: 20181001
